FAERS Safety Report 18641293 (Version 1)
Quarter: 2020Q4

REPORT INFORMATION
  Report Type: Spontaneous
  Country: US (occurrence: US)
  Receive Date: 20201221
  Receipt Date: 20201221
  Transmission Date: 20210114
  Serious: No
  Sender: FDA-Public Use
  Company Number: US-SA-2020SA361186

PATIENT

DRUGS (11)
  1. DUPIXENT [Suspect]
     Active Substance: DUPILUMAB
     Dosage: 300 MG, QOW
     Route: 058
     Dates: start: 2020
  2. CEPHALEXINE [Concomitant]
     Active Substance: CEPHALEXIN
  3. SUMATRIPTAN. [Concomitant]
     Active Substance: SUMATRIPTAN
  4. TOPIRAMATE. [Concomitant]
     Active Substance: TOPIRAMATE
  5. DUPIXENT [Suspect]
     Active Substance: DUPILUMAB
     Dosage: TOOK TWO WEEKS IN A ROLL
     Route: 058
     Dates: start: 2020, end: 2020
  6. CLINDAMYCIN. [Concomitant]
     Active Substance: CLINDAMYCIN
  7. DUPIXENT [Suspect]
     Active Substance: DUPILUMAB
     Indication: ASTHMA
     Dosage: 300 MG, QOW
     Route: 058
     Dates: start: 20200121, end: 2020
  8. LEVOCETRIZINE HYDROCHLORIDE [Concomitant]
  9. MONTELUKAST [Concomitant]
     Active Substance: MONTELUKAST SODIUM
  10. BREOPRIN [Concomitant]
     Active Substance: ASPIRIN
  11. BUPROPION. [Concomitant]
     Active Substance: BUPROPION

REACTIONS (1)
  - Inappropriate schedule of product administration [Unknown]

NARRATIVE: CASE EVENT DATE: 2020
